FAERS Safety Report 13538487 (Version 1)
Quarter: 2017Q2

REPORT INFORMATION
  Report Type: Spontaneous
  Country: US (occurrence: US)
  Receive Date: 20170512
  Receipt Date: 20170512
  Transmission Date: 20170830
  Serious: Yes (Hospitalization, Other)
  Sender: FDA-Public Use
  Company Number: US-AMGEN-USASP2017069265

PATIENT
  Age: 65 Year
  Sex: Female
  Weight: 71.21 kg

DRUGS (41)
  1. CARBOPLATIN. [Suspect]
     Active Substance: CARBOPLATIN
     Dosage: UNK, CYCLE 4
     Route: 065
     Dates: start: 20160127
  2. CARBOPLATIN. [Suspect]
     Active Substance: CARBOPLATIN
     Dosage: UNK, CYCLE 2
     Route: 065
     Dates: start: 20151214
  3. ZOLOFT [Suspect]
     Active Substance: SERTRALINE HYDROCHLORIDE
     Indication: PRODUCT USED FOR UNKNOWN INDICATION
     Dosage: UNK
     Route: 065
  4. PROVENTIL HFA [Concomitant]
     Active Substance: ALBUTEROL SULFATE
     Indication: DYSPNOEA
     Dosage: 90 MUG, 2 PUFFS INH Q 3-4 HRS PRN
     Route: 045
     Dates: start: 20160620
  5. NEUPOGEN [Suspect]
     Active Substance: FILGRASTIM
     Indication: PRODUCT USED FOR UNKNOWN INDICATION
     Dosage: 300 MUG, QD
     Route: 058
     Dates: start: 201511
  6. IBRANCE [Suspect]
     Active Substance: PALBOCICLIB
     Dosage: 75 MG, QD FOR 21 DAYS (7 DAYS OFF)
     Route: 048
     Dates: start: 20170217
  7. ETOPOSIDE. [Suspect]
     Active Substance: ETOPOSIDE
     Dosage: UNK, CYCLE 2
     Route: 065
     Dates: start: 20151214
  8. ETOPOSIDE. [Suspect]
     Active Substance: ETOPOSIDE
     Dosage: UNK, CYCLE 6
     Route: 065
     Dates: start: 20160309
  9. LETROZOLE. [Concomitant]
     Active Substance: LETROZOLE
     Dosage: UNK
     Dates: start: 201604
  10. LETROZOLE. [Concomitant]
     Active Substance: LETROZOLE
     Dosage: 2.5 MG, QD
     Route: 048
     Dates: start: 20170316
  11. IPRATROPIUM/ALBUTEROL [Concomitant]
     Active Substance: ALBUTEROL\IPRATROPIUM
     Indication: DYSPNOEA
     Dosage: (0.5 MG- 3 MG (2.5 MG BASE)/ 3 ML), ONE VIAL IN NEBULIZER EVERY 4 HOURS AS NEEDED
     Dates: start: 20160112
  12. BABY ASPIRIN [Concomitant]
     Active Substance: ASPIRIN
     Indication: THROMBOCYTOPENIA
  13. SPIRIVA [Concomitant]
     Active Substance: TIOTROPIUM BROMIDE MONOHYDRATE
     Indication: CHRONIC OBSTRUCTIVE PULMONARY DISEASE
     Dosage: UNK
  14. NEULASTA [Suspect]
     Active Substance: PEGFILGRASTIM
     Indication: PRODUCT USED FOR UNKNOWN INDICATION
     Dosage: 6 MG, QD
     Route: 058
     Dates: start: 20160204
  15. IBRANCE [Suspect]
     Active Substance: PALBOCICLIB
     Indication: BREAST CANCER METASTATIC
     Dosage: 100 MG, QD FOR 21 DAYS (7 DAYS OFF)
     Route: 048
     Dates: start: 20160404
  16. ETOPOSIDE. [Suspect]
     Active Substance: ETOPOSIDE
     Dosage: UNK, CYCLE 5
     Route: 065
     Dates: start: 20160207
  17. LETROZOLE. [Concomitant]
     Active Substance: LETROZOLE
     Dosage: 2.5 MG, QD
     Route: 048
     Dates: start: 20170217, end: 2017
  18. PROAIR HFA [Concomitant]
     Active Substance: ALBUTEROL SULFATE
     Indication: WHEEZING
     Dosage: 90 MUG, 2 PUFFS LNH Q4H PRN
     Dates: start: 20160629
  19. OMEPRAZOLE. [Concomitant]
     Active Substance: OMEPRAZOLE
     Indication: RADIATION OESOPHAGITIS
     Dosage: 40 MG, QD
     Route: 048
     Dates: start: 20160114
  20. CARBOPLATIN. [Suspect]
     Active Substance: CARBOPLATIN
     Indication: BREAST CANCER FEMALE
     Dosage: UNK, CYCLE 1
     Route: 065
     Dates: start: 20151103
  21. CARBOPLATIN. [Suspect]
     Active Substance: CARBOPLATIN
     Dosage: UNK, CYCLE 5
     Route: 065
     Dates: start: 20160207
  22. CARBOPLATIN. [Suspect]
     Active Substance: CARBOPLATIN
     Dosage: UNK, CYCLE 6
     Route: 065
     Dates: start: 20160309
  23. ALBUTEROL SULFATE. [Concomitant]
     Active Substance: ALBUTEROL SULFATE
     Dosage: 2.5 MG/3 ML (0.083 %), Q4H PRN
     Dates: start: 20160224
  24. BROVANA [Concomitant]
     Active Substance: ARFORMOTEROL TARTRATE
     Dosage: UNK, BID
     Dates: start: 20160112
  25. HYDROCODONE/HOMATROPINE [Concomitant]
     Active Substance: HOMATROPINE METHYLBROMIDE\HYDROCODONE BITARTRATE
     Dosage: UNK, AS NECESSARY (HYDROCODONE-HOMATROPINE 5 MG-1.5 MG)
     Dates: start: 20151222
  26. PROAIR HFA [Concomitant]
     Active Substance: ALBUTEROL SULFATE
     Indication: DYSPNOEA
  27. SENNA [Concomitant]
     Active Substance: SENNA LEAF\SENNOSIDES\SENNOSIDES A AND B
     Dosage: 8.6 MG, 2 TAB QD PRN
     Route: 048
     Dates: start: 20160204
  28. CARBOPLATIN. [Suspect]
     Active Substance: CARBOPLATIN
     Dosage: UNK, CYCLE 3
     Route: 065
     Dates: start: 20160106
  29. ETOPOSIDE. [Suspect]
     Active Substance: ETOPOSIDE
     Dosage: UNK, CYCLE 3
     Route: 065
     Dates: start: 20160106
  30. TESSALON [Suspect]
     Active Substance: BENZONATATE
     Indication: COUGH
     Dosage: 200 MG, TID PRN
     Route: 065
  31. ATENOLOL AND CHLORTHALIDONE [Concomitant]
     Active Substance: ATENOLOL\CHLORTHALIDONE
     Dosage: UNK (ATENOLOL 100 MG-CHLORTHALIDONE 25 MG)
     Route: 048
     Dates: start: 20160803
  32. ATIVAN [Concomitant]
     Active Substance: LORAZEPAM
     Dosage: 0.5 MG, AS NECESSARY
     Dates: start: 20151222
  33. VICODIN [Concomitant]
     Active Substance: ACETAMINOPHEN\HYDROCODONE BITARTRATE
     Indication: PAIN
     Dosage: (5 MG-300 MG), Q4H PRN
     Route: 048
     Dates: start: 20151222
  34. BABY ASPIRIN [Concomitant]
     Active Substance: ASPIRIN
     Indication: DEEP VEIN THROMBOSIS
     Dosage: UNK UNK, QD
     Route: 048
  35. ARIMIDEX [Concomitant]
     Active Substance: ANASTROZOLE
     Dosage: 1 MG, QD
     Route: 058
  36. OXYGEN. [Concomitant]
     Active Substance: OXYGEN
     Indication: CHRONIC OBSTRUCTIVE PULMONARY DISEASE
     Dosage: 2 UNIT, UNK
     Dates: start: 20160404
  37. ETOPOSIDE. [Suspect]
     Active Substance: ETOPOSIDE
     Indication: BREAST CANCER FEMALE
     Dosage: UNK, CYCLE 1
     Route: 065
     Dates: start: 20151103
  38. ETOPOSIDE. [Suspect]
     Active Substance: ETOPOSIDE
     Dosage: UNK, CYCLE 4
     Route: 065
     Dates: start: 20160127
  39. ASPIRIN. [Concomitant]
     Active Substance: ASPIRIN
     Dosage: 81 MG, QD
     Route: 048
     Dates: start: 20160502
  40. INCRUSE ELLIPTA [Concomitant]
     Active Substance: UMECLIDINIUM BROMIDE
     Dosage: 62.5 MUG, AS NECESSARY
     Dates: start: 20170120
  41. OXYGEN. [Concomitant]
     Active Substance: OXYGEN
     Indication: CHRONIC OBSTRUCTIVE PULMONARY DISEASE
     Dosage: UNK

REACTIONS (18)
  - Oedema peripheral [Unknown]
  - Chest pain [Unknown]
  - Headache [Unknown]
  - Hypokalaemia [Recovered/Resolved]
  - Thrombocytopenia [Recovered/Resolved]
  - Dyspnoea [Recovering/Resolving]
  - Cough [Unknown]
  - Fatigue [Unknown]
  - Pain in extremity [Unknown]
  - Lymphadenopathy [Unknown]
  - Anaemia [Unknown]
  - Inappropriate schedule of drug administration [Unknown]
  - Respiratory distress [Unknown]
  - Osteoporosis [Unknown]
  - White blood cell count decreased [Recovered/Resolved]
  - Radiation oesophagitis [Recovered/Resolved]
  - Deep vein thrombosis [Recovered/Resolved]
  - Chronic obstructive pulmonary disease [Recovering/Resolving]

NARRATIVE: CASE EVENT DATE: 201511
